FAERS Safety Report 6724550-8 (Version None)
Quarter: 2010Q2

REPORT INFORMATION
  Report Type: 
  Country: None (occurrence: None)
  Receive Date: 20100513
  Receipt Date: 20100506
  Transmission Date: 20101027
  Serious: Yes (Other)
  Sender: FDA-Public Use
  Company Number: BR-PFIZER INC-2010046264

PATIENT
  Age: 84 Year
  Sex: Female

DRUGS (5)
  1. CITALOR [Suspect]
     Indication: HYPERCHOLESTEROLAEMIA
     Dosage: 10 MG, THREE TIMES WEEKLY
     Route: 048
  2. NORVASC [Suspect]
     Indication: HYPERTENSION
     Dosage: 2.5 MG (HALF OF 5 MG TABLET), 1X/DAY
     Route: 048
  3. PROPRANOLOL [Suspect]
     Indication: HYPERTENSION
     Dosage: UNK
     Route: 048
  4. SUSTRATE [Suspect]
     Dosage: UNK
  5. ASPIRIN [Suspect]
     Indication: THROMBOSIS PROPHYLAXIS
     Dosage: UNK

REACTIONS (4)
  - BLOOD PRESSURE FLUCTUATION [None]
  - DIZZINESS [None]
  - DRUG EFFECT DECREASED [None]
  - NECK PAIN [None]
